FAERS Safety Report 10527085 (Version 1)
Quarter: 2014Q4

REPORT INFORMATION
  Report Type: Spontaneous
  Country: US (occurrence: US)
  Receive Date: 20141020
  Receipt Date: 20141020
  Transmission Date: 20150528
  Serious: Yes (Other)
  Sender: FDA-Public Use
  Company Number: US-RANBAXY-2014US-86562

PATIENT
  Sex: Female

DRUGS (1)
  1. ABSORICA [Suspect]
     Active Substance: ISOTRETINOIN
     Indication: PRODUCT USED FOR UNKNOWN INDICATION
     Dosage: UNK MG, UNK
     Route: 065
     Dates: start: 20140609, end: 20140811

REACTIONS (1)
  - Influenza [Unknown]
